FAERS Safety Report 5509878-1 (Version None)
Quarter: 2007Q4

REPORT INFORMATION
  Report Type: 
  Country: None (occurrence: None)
  Receive Date: 20071107
  Receipt Date: 20071107
  Transmission Date: 20080405
  Serious: Yes (Hospitalization)
  Sender: FDA-Public Use
  Company Number: None

PATIENT
  Sex: Female
  Weight: 146.3 kg

DRUGS (2)
  1. CARBOPLATIN [Suspect]
     Dosage: 846 MG
  2. TAXOL [Suspect]
     Dosage: 350 MG

REACTIONS (16)
  - ABDOMINAL PAIN [None]
  - ANAEMIA [None]
  - BODY TEMPERATURE INCREASED [None]
  - CONSTIPATION [None]
  - CULTURE WOUND POSITIVE [None]
  - DYSPNOEA EXERTIONAL [None]
  - HAEMATOMA [None]
  - INCISION SITE ERYTHEMA [None]
  - INDURATION [None]
  - NAUSEA [None]
  - POSTOPERATIVE WOUND COMPLICATION [None]
  - PURULENCE [None]
  - SEROMA [None]
  - STAPHYLOCOCCAL INFECTION [None]
  - WOUND COMPLICATION [None]
  - WOUND SECRETION [None]
